FAERS Safety Report 16725000 (Version 1)
Quarter: 2019Q3

REPORT INFORMATION
  Report Type: Spontaneous
  Country: GB (occurrence: GB)
  Receive Date: 20190821
  Receipt Date: 20190821
  Transmission Date: 20191005
  Serious: Yes (Disabling)
  Sender: FDA-Public Use
  Company Number: GB-AMGEN-GBRSP2019131518

PATIENT
  Age: 24 Year
  Sex: Female

DRUGS (1)
  1. ADALIMUMAB [Suspect]
     Active Substance: ADALIMUMAB
     Indication: ANKYLOSING SPONDYLITIS
     Dosage: 40 MILLIGRAM, Q2WK
     Route: 058
     Dates: start: 20190501, end: 20190719

REACTIONS (2)
  - Iritis [Recovering/Resolving]
  - Parotitis [Recovering/Resolving]

NARRATIVE: CASE EVENT DATE: 20190628
